FAERS Safety Report 16295272 (Version 3)
Quarter: 2021Q2

REPORT INFORMATION
  Report Type: Spontaneous
  Country: US (occurrence: US)
  Receive Date: 20190509
  Receipt Date: 20210605
  Transmission Date: 20210716
  Serious: Yes (Hospitalization)
  Sender: FDA-Public Use
  Company Number: US-ROCHE-2271878

PATIENT
  Sex: Male

DRUGS (1)
  1. ESBRIET [Suspect]
     Active Substance: PIRFENIDONE
     Indication: IDIOPATHIC PULMONARY FIBROSIS
     Dosage: 3 PILLS 3 TIMES DAILY; ONGOING: YES
     Route: 048
     Dates: start: 20140914

REACTIONS (3)
  - Cough [Unknown]
  - Lung disorder [Recovering/Resolving]
  - Dyspnoea [Not Recovered/Not Resolved]
